FAERS Safety Report 8970576 (Version 1)
Quarter: 2012Q4

REPORT INFORMATION
  Report Type: 
  Country: US (occurrence: US)
  Receive Date: 20121218
  Receipt Date: 20121218
  Transmission Date: 20130627
  Serious: No
  Sender: FDA-Public Use
  Company Number: US-BRISTOL-MYERS SQUIBB COMPANY-16508772

PATIENT
  Age: 50 Year
  Sex: Female

DRUGS (2)
  1. ABILIFY [Suspect]
     Indication: MAJOR DEPRESSION
     Dosage: Strated with 5mg then reduced to half tab of 5mg tablet.
Dose:5mg,2.5mg
  2. ABILIFY [Suspect]
     Indication: BIPOLAR II DISORDER
     Dosage: Strated with 5mg then reduced to half tab of 5mg tablet.
Dose:5mg,2.5mg

REACTIONS (1)
  - Musculoskeletal stiffness [Not Recovered/Not Resolved]
